FAERS Safety Report 7973708-9 (Version None)
Quarter: 2011Q4

REPORT INFORMATION
  Report Type: 
  Country: None (occurrence: None)
  Receive Date: 20111213
  Receipt Date: 20111213
  Transmission Date: 20120403
  Serious: Yes (Other)
  Sender: FDA-Public Use
  Company Number: None

PATIENT
  Sex: Male
  Weight: 99.336 kg

DRUGS (1)
  1. CIPROFLOXACIN [Suspect]
     Indication: INFECTED DERMAL CYST
     Dosage: 1
     Route: 048
     Dates: start: 20111027, end: 20111027

REACTIONS (7)
  - MUSCULOSKELETAL PAIN [None]
  - BACK PAIN [None]
  - ARTHRALGIA [None]
  - SOMNOLENCE [None]
  - ACTIVITIES OF DAILY LIVING IMPAIRED [None]
  - TENDON PAIN [None]
  - FATIGUE [None]
